FAERS Safety Report 10965695 (Version 1)
Quarter: 2015Q1

REPORT INFORMATION
  Report Type: Spontaneous
  Country: US (occurrence: None)
  Receive Date: 20150226
  Receipt Date: 20150226
  Transmission Date: 20150721
  Serious: Yes (Hospitalization)
  Sender: FDA-Public Use
  Company Number: TPA2009A02591

PATIENT
  Age: 71 Year
  Sex: Male

DRUGS (6)
  1. UNSPECIFIED PAIN MEDICATIONS [Suspect]
     Active Substance: UNSPECIFIED INGREDIENT
     Indication: PAIN
  2. HYDROCHLOROTHIAZIDE (HYDROCHLOROTHIAZIDE) (UNKNOWN) [Concomitant]
  3. ULORIC [Suspect]
     Active Substance: FEBUXOSTAT
     Indication: GOUT
     Route: 048
     Dates: start: 20090821
  4. METOPROLOL (METOPROLOL) (UNKNOWN) [Concomitant]
  5. PREDNISONE (PREDNISONE) [Concomitant]
     Active Substance: PREDNISONE
  6. COLCHICINE (COLCHICINE) (UNKNOWN) [Concomitant]

REACTIONS (3)
  - Pyrexia [None]
  - Gouty arthritis [None]
  - Atrial fibrillation [None]

NARRATIVE: CASE EVENT DATE: 20090901
